FAERS Safety Report 24822545 (Version 1)
Quarter: 2025Q1

REPORT INFORMATION
  Report Type: Spontaneous
  Country: MA (occurrence: MA)
  Receive Date: 20250109
  Receipt Date: 20250109
  Transmission Date: 20250409
  Serious: Yes (Hospitalization, Other)
  Sender: NOVARTIS
  Company Number: MA-002147023-NVSC2025MA001506

PATIENT
  Age: 52 Year
  Sex: Female

DRUGS (1)
  1. KISQALI [Suspect]
     Active Substance: RIBOCICLIB
     Indication: Breast cancer
     Dosage: 200 MG, Q24H
     Route: 048

REACTIONS (5)
  - Breast cancer recurrent [Unknown]
  - Metastases to lung [Unknown]
  - Pulmonary oedema [Unknown]
  - Oral disorder [Unknown]
  - Fatigue [Unknown]
